FAERS Safety Report 7595448-0 (Version None)
Quarter: 2011Q3

REPORT INFORMATION
  Report Type: 
  Country: None (occurrence: None)
  Receive Date: 20110707
  Receipt Date: 20110624
  Transmission Date: 20111222
  Serious: Yes (Hospitalization, Other)
  Sender: FDA-Public Use
  Company Number: FR-ROCHE-786314

PATIENT
  Sex: Female
  Weight: 56 kg

DRUGS (10)
  1. TOCILIZUMAB [Suspect]
     Indication: RHEUMATOID ARTHRITIS
     Route: 042
     Dates: start: 20100629, end: 20100727
  2. TRAMADOL HCL [Concomitant]
  3. FLECAINIDE ACETATE [Concomitant]
     Dosage: 100 MG 1/2 TABLET BICE IN DAY.
  4. LASIX [Concomitant]
  5. FOSAVANCE [Concomitant]
  6. OROCAL D3 [Concomitant]
  7. PREDNISONE [Concomitant]
     Dates: start: 20100629
  8. FENOFIBRATE [Concomitant]
  9. TENORMIN [Concomitant]
  10. OMEPRAZOLE [Concomitant]

REACTIONS (2)
  - RESPIRATORY DISORDER [None]
  - LYMPHOEDEMA [None]
